FAERS Safety Report 5462895-2 (Version None)
Quarter: 2007Q3

REPORT INFORMATION
  Report Type: 
  Country: None (occurrence: None)
  Receive Date: 20070920
  Receipt Date: 20061004
  Transmission Date: 20080115
  Serious: No
  Sender: FDA-Public Use
  Company Number: US-BAUSCH-2006BL005877

PATIENT
  Age: 23 Year
  Sex: Male

DRUGS (3)
  1. NEOMYCIN AND POLYMYXIN B SULFATES AND HYDROCORTISONE OTIC SUSPENSION [Suspect]
     Route: 047
     Dates: start: 20061002, end: 20061004
  2. SINGULAIR [Concomitant]
  3. RANITIDINE [Concomitant]

REACTIONS (2)
  - EYE IRRITATION [None]
  - MEDICATION ERROR [None]
